FAERS Safety Report 6815135-3 (Version None)
Quarter: 2010Q3

REPORT INFORMATION
  Report Type: 
  Country: None (occurrence: None)
  Receive Date: 20100702
  Receipt Date: 20100628
  Transmission Date: 20110219
  Serious: Yes (Death, Hospitalization, Other)
  Sender: FDA-Public Use
  Company Number: PHHY2010CA28657

PATIENT
  Sex: Female

DRUGS (5)
  1. ZOMETA [Suspect]
     Indication: METASTASES TO BONE
     Dosage: 4 MG EVERY 3 WEEKS
     Route: 042
     Dates: start: 20070101, end: 20100604
  2. CHEMOTHERAPEUTICS [Concomitant]
  3. CYCLOPHOSPHAMIDE [Concomitant]
  4. ADRIAMYCIN PFS [Concomitant]
  5. FLUOROURACIL [Concomitant]

REACTIONS (11)
  - BLOOD CALCIUM DECREASED [None]
  - BLOOD CREATININE DECREASED [None]
  - CARBOHYDRATE ANTIGEN 15-3 INCREASED [None]
  - DEATH [None]
  - HAEMOGLOBIN DECREASED [None]
  - MALIGNANT NEOPLASM PROGRESSION [None]
  - MEAN CELL HAEMOGLOBIN DECREASED [None]
  - METASTASES TO BONE [None]
  - RED CELL DISTRIBUTION WIDTH INCREASED [None]
  - RETICULOCYTE COUNT INCREASED [None]
  - RETICULOCYTE PERCENTAGE INCREASED [None]
